FAERS Safety Report 26216109 (Version 1)
Quarter: 2025Q4

REPORT INFORMATION
  Report Type: Spontaneous
  Country: GB (occurrence: GB)
  Receive Date: 20251231
  Receipt Date: 20251231
  Transmission Date: 20260118
  Serious: Yes (Hospitalization)
  Sender: ACCORD
  Company Number: GB-MLMSERVICE-20251215-PI749007-00303-1

PATIENT
  Age: 58 Year
  Sex: Male

DRUGS (6)
  1. FUROSEMIDE [Interacting]
     Active Substance: FUROSEMIDE
     Indication: Ascites
     Dates: start: 2023
  2. CIPROFLOXACIN [Interacting]
     Active Substance: CIPROFLOXACIN
     Indication: Prophylaxis
     Dosage: LONG-TERM
     Dates: start: 2023
  3. SPIRONOLACTONE [Interacting]
     Active Substance: SPIRONOLACTONE
     Indication: Ascites
     Dates: start: 2023, end: 2023
  4. CARVEDILOL [Interacting]
     Active Substance: CARVEDILOL
     Indication: Gastrooesophageal variceal haemorrhage prophylaxis
     Dosage: 3.125MG
     Dates: start: 2023
  5. LACTULOSE [Interacting]
     Active Substance: LACTULOSE
     Indication: Hepatic encephalopathy prophylaxis
     Dates: start: 2023
  6. THIAMINE [Concomitant]
     Active Substance: THIAMINE
     Indication: Prophylaxis
     Dates: start: 2023

REACTIONS (2)
  - Adrenal insufficiency [Unknown]
  - Drug interaction [Unknown]

NARRATIVE: CASE EVENT DATE: 20230101
